FAERS Safety Report 18129681 (Version 1)
Quarter: 2020Q3

REPORT INFORMATION
  Report Type: Spontaneous
  Country: US (occurrence: US)
  Receive Date: 20200810
  Receipt Date: 20200810
  Transmission Date: 20201103
  Serious: Yes (Hospitalization, Other)
  Sender: FDA-Public Use
  Company Number: None

PATIENT
  Age: 40 Year
  Sex: Male
  Weight: 108 kg

DRUGS (2)
  1. CALC FLOUR [Suspect]
     Active Substance: HOMEOPATHICS
     Dosage: ?          OTHER STRENGTH:6X;QUANTITY:1000 TABLET(S);?
     Route: 048
     Dates: start: 20200801, end: 20200805
  2. CALC FLOUR 6X [Suspect]
     Active Substance: HOMEOPATHICS
     Indication: HOMEOPATHY
     Dosage: ?          OTHER STRENGTH:6X;QUANTITY:1000 TABLET(S);?
     Route: 048
     Dates: start: 20200807, end: 20200810

REACTIONS (1)
  - Rectal abscess [None]

NARRATIVE: CASE EVENT DATE: 20200808
